FAERS Safety Report 11057694 (Version 1)
Quarter: 2015Q2

REPORT INFORMATION
  Report Type: Spontaneous
  Country: US (occurrence: US)
  Receive Date: 20150423
  Receipt Date: 20150423
  Transmission Date: 20150821
  Serious: Yes (Other)
  Sender: FDA-Public Use
  Company Number: US-ASTRAZENECA-2015SE36535

PATIENT
  Age: 46 Year

DRUGS (4)
  1. PROZAC [Concomitant]
     Active Substance: FLUOXETINE HYDROCHLORIDE
     Indication: AFFECTIVE DISORDER
  2. SYMBICORT [Suspect]
     Active Substance: BUDESONIDE\FORMOTEROL FUMARATE DIHYDRATE
     Route: 055
  3. LITHIUM. [Concomitant]
     Active Substance: LITHIUM
     Indication: AFFECTIVE DISORDER
  4. UNSPECIFIED PULMICORT [Suspect]
     Active Substance: BUDESONIDE
     Route: 055

REACTIONS (14)
  - Bone loss [Unknown]
  - Back pain [Not Recovered/Not Resolved]
  - Infection [Unknown]
  - Wrist fracture [Unknown]
  - Osteochondrosis [Unknown]
  - Osteoporosis [Not Recovered/Not Resolved]
  - Osteopenia [Unknown]
  - Depression [Not Recovered/Not Resolved]
  - Affective disorder [Unknown]
  - Arthralgia [Not Recovered/Not Resolved]
  - Lipoma [Unknown]
  - Muscular weakness [Unknown]
  - Arthropathy [Unknown]
  - Spinal deformity [Not Recovered/Not Resolved]
